FAERS Safety Report 18916525 (Version 1)
Quarter: 2021Q1

REPORT INFORMATION
  Report Type: Spontaneous
  Country: US (occurrence: US)
  Receive Date: 20210219
  Receipt Date: 20210219
  Transmission Date: 20210420
  Serious: Yes (Other)
  Sender: FDA-Public Use
  Company Number: US-TOLMAR, INC.-21US025567

PATIENT
  Age: 82 Year
  Sex: Male

DRUGS (5)
  1. DEGARELIX [Suspect]
     Active Substance: DEGARELIX
     Indication: PROSTATE CANCER
     Dosage: UNK
     Route: 065
  2. ABIRATERONE ACETATE. [Suspect]
     Active Substance: ABIRATERONE ACETATE
     Indication: ADRENOGENITAL SYNDROME
     Dosage: 1000 MG, QD
     Route: 065
  3. ELIGARD [Suspect]
     Active Substance: LEUPROLIDE ACETATE
     Indication: PROSTATE CANCER
     Dosage: UNK
     Route: 065
  4. BICALUTAMIDE. [Suspect]
     Active Substance: BICALUTAMIDE
     Indication: PROSTATE CANCER
     Dosage: 50 MG, QD
     Route: 065
  5. PREDNISONE. [Suspect]
     Active Substance: PREDNISONE
     Indication: ADRENOGENITAL SYNDROME
     Dosage: 2.5 MG, BID
     Route: 065

REACTIONS (5)
  - Blood testosterone increased [Recovered/Resolved]
  - Adrenogenital syndrome [Unknown]
  - Drug ineffective [Unknown]
  - Prostatic specific antigen increased [Recovered/Resolved]
  - Prostate cancer [Not Recovered/Not Resolved]
